FAERS Safety Report 13305716 (Version 1)
Quarter: 2017Q1

REPORT INFORMATION
  Report Type: Spontaneous
  Country: US (occurrence: US)
  Receive Date: 20170308
  Receipt Date: 20170308
  Transmission Date: 20170428
  Serious: Yes (Hospitalization)
  Sender: FDA-Public Use
  Company Number: None

PATIENT
  Age: 57 Year
  Sex: Male
  Weight: 110.2 kg

DRUGS (19)
  1. LOSARTAN. [Concomitant]
     Active Substance: LOSARTAN
  2. NYSTATIN. [Concomitant]
     Active Substance: NYSTATIN
  3. EQUATETM, VISION FORMULAT WITH LUTEIN [Concomitant]
  4. VITAMIN E [Concomitant]
     Active Substance: .ALPHA.-TOCOPHEROL
  5. WALGREENS MEN^S ULTIMATE A THRU Z MULTIVITAMIN [Concomitant]
  6. TOUJEO SOLO [Concomitant]
  7. ACETAMINOPHEN. [Concomitant]
     Active Substance: ACETAMINOPHEN
  8. PLAVIX [Concomitant]
     Active Substance: CLOPIDOGREL BISULFATE
  9. METOPROLOL TARTRATE. [Concomitant]
     Active Substance: METOPROLOL TARTRATE
  10. VIAGRA [Concomitant]
     Active Substance: SILDENAFIL CITRATE
  11. ASPIRIN. [Concomitant]
     Active Substance: ASPIRIN
  12. FISH OIL [Concomitant]
     Active Substance: FISH OIL
  13. ALLOPURINOL. [Concomitant]
     Active Substance: ALLOPURINOL
  14. MELOXICAM. [Concomitant]
     Active Substance: MELOXICAM
  15. JANUVIA [Suspect]
     Active Substance: SITAGLIPTIN PHOSPHATE
     Indication: DIABETES MELLITUS
     Dosage: ?          QUANTITY:1 TABLET(S);?
     Route: 048
  16. LIPITOR [Concomitant]
     Active Substance: ATORVASTATIN CALCIUM
  17. RELAX + SLEEP, VALERIAN, CHAMOMILE, MELATONIN [Concomitant]
  18. VITAMIN D [Concomitant]
     Active Substance: CHOLECALCIFEROL
  19. GLUCOSAMINE [Concomitant]
     Active Substance: GLUCOSAMINE

REACTIONS (4)
  - Dysentery [None]
  - Back pain [None]
  - Dysbacteriosis [None]
  - Dehydration [None]

NARRATIVE: CASE EVENT DATE: 20170302
